FAERS Safety Report 17739686 (Version 2)
Quarter: 2020Q2

REPORT INFORMATION
  Report Type: Spontaneous
  Country: JP (occurrence: JP)
  Receive Date: 20200504
  Receipt Date: 20200603
  Transmission Date: 20200714
  Serious: Yes (Other)
  Sender: FDA-Public Use
  Company Number: JP-ORION CORPORATION ORION PHARMA-ENT 2020-0034

PATIENT
  Age: 66 Year
  Sex: Female

DRUGS (5)
  1. COMTAN [Suspect]
     Active Substance: ENTACAPONE
     Indication: PARKINSON^S DISEASE
     Route: 048
  2. DOPACOL [Concomitant]
     Active Substance: CARBIDOPA\LEVODOPA
     Route: 065
  3. MENESIT [Concomitant]
     Active Substance: CARBIDOPA\LEVODOPA
     Route: 050
  4. NOURIAST [Concomitant]
     Active Substance: ISTRADEFYLLINE
     Route: 065
  5. COMTAN [Suspect]
     Active Substance: ENTACAPONE
     Route: 050

REACTIONS (3)
  - Dysphagia [Unknown]
  - Product use issue [Unknown]
  - Wrong technique in product usage process [Unknown]
